FAERS Safety Report 21868168 (Version 6)
Quarter: 2024Q3

REPORT INFORMATION
  Report Type: Spontaneous
  Country: JP (occurrence: JP)
  Receive Date: 20230116
  Receipt Date: 20240718
  Transmission Date: 20241016
  Serious: Yes (Hospitalization, Disabling)
  Sender: ABBVIE
  Company Number: JP-ABBVIE-4232852

PATIENT
  Age: 75 Year
  Sex: Male
  Weight: 57 kg

DRUGS (24)
  1. SKYRIZI [Suspect]
     Active Substance: RISANKIZUMAB-RZAA
     Indication: Pustular psoriasis
     Dosage: LAST ADMINISTRATION DATE 2022
     Route: 058
     Dates: start: 20221207
  2. SKYRIZI [Suspect]
     Active Substance: RISANKIZUMAB-RZAA
     Route: 058
     Dates: start: 20211013
  3. SKYRIZI [Suspect]
     Active Substance: RISANKIZUMAB-RZAA
     Dosage: LAST ADMINISTRATION DATE 2022
     Route: 058
     Dates: start: 20220914
  4. SKYRIZI [Suspect]
     Active Substance: RISANKIZUMAB-RZAA
     Route: 058
     Dates: start: 20230301
  5. SKYRIZI [Suspect]
     Active Substance: RISANKIZUMAB-RZAA
     Route: 058
     Dates: start: 20220105
  6. SKYRIZI [Suspect]
     Active Substance: RISANKIZUMAB-RZAA
     Route: 058
     Dates: start: 20220622
  7. SKYRIZI [Suspect]
     Active Substance: RISANKIZUMAB-RZAA
     Route: 058
     Dates: start: 20220330
  8. SKYRIZI [Suspect]
     Active Substance: RISANKIZUMAB-RZAA
     Dosage: LAST ADMIN DATE: 2024
     Route: 058
     Dates: start: 20240312
  9. SKYRIZI [Suspect]
     Active Substance: RISANKIZUMAB-RZAA
     Route: 058
     Dates: start: 20240605
  10. SKYRIZI [Suspect]
     Active Substance: RISANKIZUMAB-RZAA
     Indication: Pustular psoriasis
     Dosage: LAST ADMINISTRATION DATE 2021?FORM STRENGTH 150 MG
     Route: 058
     Dates: start: 20210721
  11. SKYRIZI [Suspect]
     Active Substance: RISANKIZUMAB-RZAA
     Dosage: FORM STRENGTH: 150 MILLIGRAM?LAST ADMINISTRATION DATE 2021
     Route: 058
     Dates: start: 20210623
  12. SPEVIGO [Concomitant]
     Active Substance: SPESOLIMAB-SBZO
     Indication: Product used for unknown indication
     Dosage: 900 MG
     Route: 065
     Dates: start: 20231204
  13. SPEVIGO [Concomitant]
     Active Substance: SPESOLIMAB-SBZO
     Indication: Product used for unknown indication
     Dosage: 900 MG
     Route: 065
     Dates: start: 20231127
  14. METHYLPREDNISOLONE [Concomitant]
     Active Substance: METHYLPREDNISOLONE
     Indication: Facial paralysis
  15. HEPARINOID [Concomitant]
     Indication: Product used for unknown indication
     Route: 003
  16. ISONIAZID [Suspect]
     Active Substance: ISONIAZID
     Indication: Mycobacterium tuberculosis complex test positive
     Dosage: 300 MILLIGRAM
     Route: 048
     Dates: start: 20231003, end: 20231124
  17. BEPOTASTINE BESYLATE [Concomitant]
     Active Substance: BEPOTASTINE BESYLATE
     Indication: Pustular psoriasis
     Dosage: FORM STRENGTH 10 MG
     Route: 048
  18. CALCIPOTRIENE AND BETAMETHASONE DIPROPIONATE [Concomitant]
     Active Substance: BETAMETHASONE DIPROPIONATE\CALCIPOTRIENE
     Indication: Product used for unknown indication
     Route: 003
  19. CALCIPOTRIENE AND BETAMETHASONE DIPROPIONATE [Concomitant]
     Active Substance: BETAMETHASONE DIPROPIONATE\CALCIPOTRIENE
     Indication: Product used for unknown indication
     Route: 003
  20. VALACYCLOVIR HYDROCHLORIDE [Concomitant]
     Active Substance: VALACYCLOVIR HYDROCHLORIDE
     Indication: Facial paralysis
     Dosage: TIME INTERVAL: 0.33333333 DAYS: 3000 MILLIGRAM?FORM STRENGTH: 500 MILLIGRAM
     Route: 048
     Dates: start: 20221026, end: 20221101
  21. ETRETINATE [Concomitant]
     Active Substance: ETRETINATE
     Indication: Product used for unknown indication
     Dosage: 30 MILLIGRAM
     Dates: start: 20231219
  22. ETRETINATE [Concomitant]
     Active Substance: ETRETINATE
     Indication: Product used for unknown indication
     Dosage: 20 MILLIGRAM
     Dates: start: 20240131, end: 20240424
  23. ETRETINATE [Concomitant]
     Active Substance: ETRETINATE
     Indication: Product used for unknown indication
     Dosage: 40 MILLIGRAM
     Dates: start: 20231127
  24. PYRIDOXAL 5-PHOSPHATE MONOHYDRATE [Concomitant]
     Indication: Prophylaxis
     Dates: start: 20231003

REACTIONS (7)
  - Facial paralysis [Recovering/Resolving]
  - Pustule [Unknown]
  - Skin wrinkling [Unknown]
  - Cholelithiasis [Unknown]
  - Dermatitis exfoliative generalised [Unknown]
  - Mycobacterium tuberculosis complex test positive [Not Recovered/Not Resolved]
  - Dermatologic examination abnormal [Unknown]

NARRATIVE: CASE EVENT DATE: 20221020
